FAERS Safety Report 7645480-3 (Version None)
Quarter: 2011Q3

REPORT INFORMATION
  Report Type: 
  Country: None (occurrence: None)
  Receive Date: 20110729
  Receipt Date: 20110719
  Transmission Date: 20111222
  Serious: Yes (Death, Hospitalization, Other)
  Sender: FDA-Public Use
  Company Number: CA-ELI_LILLY_AND_COMPANY-CA201107004923

PATIENT
  Sex: Male

DRUGS (22)
  1. ZOLOFT [Concomitant]
  2. FLOVENT [Concomitant]
  3. ZYPREXA [Suspect]
     Indication: BIPOLAR DISORDER
     Dosage: 5 MG, EACH EVENING
     Dates: start: 20000622
  4. ZESTRIL [Concomitant]
  5. VALIUM [Concomitant]
  6. PRILOSEC [Concomitant]
  7. RISPERIDONE [Concomitant]
  8. CLONIDINE [Concomitant]
  9. ZYPREXA [Suspect]
     Dosage: 10 MG, EACH EVENING
  10. ZYPREXA [Suspect]
     Dosage: 20 MG, EACH EVENING
  11. CLONAZEPAM [Concomitant]
  12. VENTOLIN                                /SCH/ [Concomitant]
  13. VENLAFAXINE [Concomitant]
  14. ZYPREXA [Suspect]
     Dosage: 2.5 MG, UNK
  15. PAROXETINE HCL [Concomitant]
  16. ZYPREXA [Suspect]
     Dosage: 15 MG, EACH EVENING
  17. BUSPAR [Concomitant]
  18. TRAZODONE HCL [Concomitant]
  19. CODEINE SULFATE [Concomitant]
  20. ZOPICLONE [Concomitant]
  21. MORPHINE SULFATE [Concomitant]
  22. SYMBICORT [Concomitant]

REACTIONS (12)
  - NODULE [None]
  - TYPE 2 DIABETES MELLITUS [None]
  - DIARRHOEA HAEMORRHAGIC [None]
  - WEIGHT INCREASED [None]
  - BLOOD TRIGLYCERIDES INCREASED [None]
  - BURSITIS [None]
  - DEATH [None]
  - PNEUMONIA ASPIRATION [None]
  - HIGH DENSITY LIPOPROTEIN INCREASED [None]
  - CARDIAC DISORDER [None]
  - SYNCOPE [None]
  - HAEMORRHAGE SUBCUTANEOUS [None]
